FAERS Safety Report 8373824-6 (Version None)
Quarter: 2012Q2

REPORT INFORMATION
  Report Type: 
  Country: None (occurrence: None)
  Receive Date: 20120521
  Receipt Date: 20120515
  Transmission Date: 20120825
  Serious: Yes (Disabling)
  Sender: FDA-Public Use
  Company Number: DE-ROCHE-1069569

PATIENT
  Weight: 76 kg

DRUGS (3)
  1. MABTHERA [Suspect]
     Indication: MALIGNANT LYMPHOID NEOPLASM
     Route: 042
     Dates: start: 20100316, end: 20120504
  2. BENDAMUSTINE [Suspect]
     Dosage: 70%
     Route: 042
     Dates: start: 20100909
  3. BENDAMUSTINE [Suspect]
     Indication: MALIGNANT LYMPHOID NEOPLASM
     Route: 042
     Dates: start: 20120322

REACTIONS (1)
  - GINGIVITIS [None]
